FAERS Safety Report 23159143 (Version 1)
Quarter: 2023Q4

REPORT INFORMATION
  Report Type: Report from Study
  Country: US (occurrence: None)
  Receive Date: 20231108
  Receipt Date: 20231108
  Transmission Date: 20240109
  Serious: Yes (Hospitalization, Other)
  Sender: FDA-Public Use
  Company Number: US-ROCHE-3450433

PATIENT
  Age: 61 Year
  Sex: Male
  Weight: 93.8 kg

DRUGS (10)
  1. ATEZOLIZUMAB [Suspect]
     Active Substance: ATEZOLIZUMAB
     Indication: Hepatocellular carcinoma
     Dosage: DATE OF MOST RECENT DOSE OF ATEZOLIZUMAB PRIOR TO ONSET OF AE: 31/JUL/2023
     Route: 041
     Dates: start: 20230417
  2. BEVACIZUMAB [Suspect]
     Active Substance: BEVACIZUMAB
     Indication: Hepatocellular carcinoma
     Dosage: DATE OF MOST RECENT DOSE OF BEVACIZUMAB PRIOR TO ONSET OF AE: 31/JUL/2023
     Route: 042
     Dates: start: 20230417
  3. LASIX [Concomitant]
     Active Substance: FUROSEMIDE
     Dates: start: 20230920
  4. TYLENOL [Concomitant]
     Active Substance: ACETAMINOPHEN
     Dates: start: 20230919
  5. MIRALAX [Concomitant]
     Active Substance: POLYETHYLENE GLYCOL 3350
     Dates: start: 20230919
  6. SENOKOT [Concomitant]
     Active Substance: SENNOSIDES
     Dates: start: 20230919
  7. DELTASONE [Concomitant]
     Active Substance: PREDNISONE
     Dates: start: 20230822, end: 20230920
  8. ZOLOFT [Concomitant]
     Active Substance: SERTRALINE HYDROCHLORIDE
     Dates: start: 20230408
  9. XIFAXAN [Concomitant]
     Active Substance: RIFAXIMIN
     Dates: start: 20210508
  10. ALDACTONE [Concomitant]
     Active Substance: SPIRONOLACTONE
     Dates: start: 20210503, end: 20230916

REACTIONS (2)
  - Embolism [Unknown]
  - Hyperkalaemia [Unknown]

NARRATIVE: CASE EVENT DATE: 20230907
